FAERS Safety Report 12085575 (Version 2)
Quarter: 2016Q1

REPORT INFORMATION
  Report Type: Spontaneous
  Country: US (occurrence: US)
  Receive Date: 20160217
  Receipt Date: 20160311
  Transmission Date: 20160526
  Serious: Yes (Death, Other)
  Sender: FDA-Public Use
  Company Number: US-GLAXOSMITHKLINE-US2016GSK022299

PATIENT
  Age: 58 Year
  Sex: Male

DRUGS (1)
  1. LAMICTAL [Suspect]
     Active Substance: LAMOTRIGINE
     Indication: BIPOLAR DISORDER
     Dosage: UNK, U
     Route: 065

REACTIONS (2)
  - Hepatic cancer [Fatal]
  - Hospice care [Recovered/Resolved]

NARRATIVE: CASE EVENT DATE: 20160106
